FAERS Safety Report 8974272 (Version 1)
Quarter: 2012Q4

REPORT INFORMATION
  Report Type: Spontaneous
  Country: US (occurrence: None)
  Receive Date: 20121217
  Receipt Date: 20121217
  Transmission Date: 20130627
  Serious: Yes (Other)
  Sender: FDA-Public Use
  Company Number: None

PATIENT
  Age: 62 Year
  Sex: Female
  Weight: 77.11 kg

DRUGS (1)
  1. LEVOTHYROXIN [Suspect]
     Indication: HASHIMOTO^S DISEASE
     Route: 048
     Dates: start: 19950101, end: 20121215

REACTIONS (3)
  - Aspartate aminotransferase increased [None]
  - Alanine aminotransferase increased [None]
  - Hepatotoxicity [None]
